FAERS Safety Report 4489451-7 (Version None)
Quarter: 2004Q4

REPORT INFORMATION
  Report Type: 
  Country: None (occurrence: None)
  Receive Date: 20041026
  Receipt Date: 20041007
  Transmission Date: 20050328
  Serious: Yes (Other)
  Sender: FDA-Public Use
  Company Number: EWC041040924

PATIENT
  Age: 49 Year
  Sex: Female

DRUGS (5)
  1. OLANZAPINE [Suspect]
     Indication: SCHIZOPHRENIA, PARANOID TYPE
     Dosage: 30 MG DAY
     Dates: start: 20040408
  2. BECOZYM [Concomitant]
  3. BENERVA (THIAMINE HYDROCHLORIDE) [Concomitant]
  4. FOLVIET (FOLIC ACID) [Concomitant]
  5. RISPERDAL [Concomitant]

REACTIONS (6)
  - ALANINE AMINOTRANSFERASE INCREASED [None]
  - ASPARTATE AMINOTRANSFERASE INCREASED [None]
  - BLOOD CHOLESTEROL INCREASED [None]
  - GAMMA-GLUTAMYLTRANSFERASE INCREASED [None]
  - LIVER DISORDER [None]
  - WEIGHT INCREASED [None]
